FAERS Safety Report 22764281 (Version 3)
Quarter: 2023Q4

REPORT INFORMATION
  Report Type: Spontaneous
  Country: US (occurrence: US)
  Receive Date: 20230731
  Receipt Date: 20231130
  Transmission Date: 20240110
  Serious: No
  Sender: FDA-Public Use
  Company Number: US-SA-SAC20230727000960

PATIENT
  Age: 50 Year
  Sex: Male
  Weight: 72.5 kg

DRUGS (4)
  1. DUPIXENT [Suspect]
     Active Substance: DUPILUMAB
     Indication: Illness
     Dosage: 300 MG, QOW
     Route: 058
  2. DUPIXENT [Suspect]
     Active Substance: DUPILUMAB
     Indication: Psoriasis
  3. VITAMIN D3 [Concomitant]
     Active Substance: CHOLECALCIFEROL
  4. METHYL SALICYLATE [Concomitant]
     Active Substance: METHYL SALICYLATE

REACTIONS (4)
  - Rash pruritic [Recovering/Resolving]
  - Dry skin [Recovering/Resolving]
  - Sleep disorder [Recovering/Resolving]
  - Product use in unapproved indication [Unknown]

NARRATIVE: CASE EVENT DATE: 20230501
